FAERS Safety Report 12159449 (Version 2)
Quarter: 2016Q2

REPORT INFORMATION
  Report Type: Spontaneous
  Country: None (occurrence: BR)
  Receive Date: 20160308
  Receipt Date: 20160516
  Transmission Date: 20160815
  Serious: Yes (Other)
  Sender: FDA-Public Use
  Company Number: BR-MERCK KGAA-1048798

PATIENT

DRUGS (1)
  1. NOVOTHYROX [Suspect]
     Active Substance: LEVOTHYROXINE SODIUM

REACTIONS (6)
  - Dyspnoea [None]
  - Vomiting [None]
  - Haematochezia [None]
  - Infrequent bowel movements [None]
  - Exposure during breast feeding [None]
  - Food allergy [None]
